FAERS Safety Report 5871735-9 (Version None)
Quarter: 2008Q3

REPORT INFORMATION
  Report Type: 
  Country: None (occurrence: None)
  Receive Date: 20080904
  Receipt Date: 20080904
  Transmission Date: 20090109
  Serious: Yes (Life-Threatening)
  Sender: FDA-Public Use
  Company Number: None

PATIENT
  Age: 17 Year
  Sex: Female
  Weight: 68.0396 kg

DRUGS (2)
  1. TEGRETOL-XR [Suspect]
     Indication: EPILEPSY
  2. TEGRETOL-XR [Suspect]
     Indication: MYOCLONIC EPILEPSY

REACTIONS (4)
  - BLOOD SODIUM DECREASED [None]
  - DISEASE RECURRENCE [None]
  - FEELING ABNORMAL [None]
  - GRAND MAL CONVULSION [None]
